FAERS Safety Report 6823927-X (Version None)
Quarter: 2010Q3

REPORT INFORMATION
  Report Type: 
  Country: None (occurrence: None)
  Receive Date: 20100708
  Receipt Date: 20060926
  Transmission Date: 20110219
  Serious: No
  Sender: FDA-Public Use
  Company Number: US-PFIZER INC-2006117681

PATIENT
  Sex: Female
  Weight: 68.95 kg

DRUGS (4)
  1. CHANTIX [Suspect]
     Indication: SMOKING CESSATION THERAPY
     Dates: start: 20060801
  2. ANTIHYPERTENSIVES [Concomitant]
  3. THYROID TAB [Concomitant]
  4. PROZAC [Concomitant]

REACTIONS (6)
  - ABDOMINAL PAIN [None]
  - ABNORMAL DREAMS [None]
  - NAUSEA [None]
  - POLLAKIURIA [None]
  - URINE OUTPUT INCREASED [None]
  - WEIGHT INCREASED [None]
